FAERS Safety Report 9554095 (Version 1)
Quarter: 2013Q3

REPORT INFORMATION
  Report Type: Spontaneous
  Country: US (occurrence: US)
  Receive Date: 20130925
  Receipt Date: 20130925
  Transmission Date: 20140515
  Serious: Yes (Other)
  Sender: FDA-Public Use
  Company Number: US-ROXANE LABORATORIES, INC.-2013-RO-01565RO

PATIENT
  Age: 56 Year
  Sex: Female

DRUGS (4)
  1. ANASTROZOLE [Suspect]
     Indication: BREAST CANCER
  2. CARBOPLATIN [Suspect]
     Indication: ENDOMETRIAL CANCER
  3. CARBOPLATIN [Suspect]
     Indication: OVARIAN CANCER
  4. CARBOPLATIN [Suspect]
     Indication: BREAST CANCER

REACTIONS (2)
  - Papilloedema [Not Recovered/Not Resolved]
  - Visual acuity reduced [Unknown]
